FAERS Safety Report 18213669 (Version 1)
Quarter: 2020Q3

REPORT INFORMATION
  Report Type: Spontaneous
  Country: US (occurrence: US)
  Receive Date: 20200831
  Receipt Date: 20200831
  Transmission Date: 20201103
  Serious: Yes (Hospitalization)
  Sender: FDA-Public Use
  Company Number: None

PATIENT
  Age: 59 Year
  Sex: Male
  Weight: 112.94 kg

DRUGS (2)
  1. DULAGLUTIDE (DULAGLUTIDE 0.75MG/0.5ML INJ, SOLN PEN) [Suspect]
     Active Substance: DULAGLUTIDE
     Indication: DIABETES MELLITUS
     Route: 058
     Dates: start: 20191016, end: 20200425
  2. DULAGLUTIDE (DULAGLUTIDE 0.75MG/0.5ML INJ, SOLN PEN) [Suspect]
     Active Substance: DULAGLUTIDE
     Indication: PAIN
     Route: 048
     Dates: start: 20200116, end: 20200426

REACTIONS (1)
  - Pancreatitis [None]

NARRATIVE: CASE EVENT DATE: 20200425
